FAERS Safety Report 8076235-6 (Version None)
Quarter: 2012Q1

REPORT INFORMATION
  Report Type: 
  Country: None (occurrence: None)
  Receive Date: 20120117
  Receipt Date: 20120110
  Transmission Date: 20120608
  Serious: Yes (Death)
  Sender: FDA-Public Use
  Company Number: 1000027225

PATIENT
  Age: 26 Year
  Sex: Male

DRUGS (4)
  1. CAFFEINE CITRATE [Suspect]
     Dosage: ORAL
     Route: 048
  2. ANTICONVULSANT (PYYROLIDINONE) (PYYROLIDINONE) [Suspect]
     Dosage: ORAL
     Route: 048
  3. DIHYDROERGOCORNINE/DIHYDROERGOCRISTINE (DIHYDROERGOCORNINE) [Suspect]
     Dosage: ORAL
     Route: 048
  4. CITALOPRAM HYDROBROMIDE [Suspect]
     Dosage: ORAL
     Route: 048

REACTIONS (1)
  - INTENTIONAL DRUG MISUSE [None]
